FAERS Safety Report 8492017-5 (Version None)
Quarter: 2012Q3

REPORT INFORMATION
  Report Type: 
  Country: None (occurrence: None)
  Receive Date: 20120706
  Receipt Date: 20120209
  Transmission Date: 20120928
  Serious: No
  Sender: FDA-Public Use
  Company Number: US-GLAXOSMITHKLINE-A0965272A

PATIENT
  Age: 84 Year
  Sex: Female

DRUGS (3)
  1. CONCURRENT MEDICATIONS [Concomitant]
  2. ASPIRIN [Concomitant]
  3. EXTINA [Suspect]
     Indication: TINEA VERSICOLOUR
     Dosage: 1APP PER DAY
     Route: 061
     Dates: start: 20100101

REACTIONS (2)
  - DRUG INEFFECTIVE [None]
  - SKIN EXFOLIATION [None]
